FAERS Safety Report 5640491-1 (Version None)
Quarter: 2008Q1

REPORT INFORMATION
  Report Type: 
  Country: None (occurrence: None)
  Receive Date: 20080227
  Receipt Date: 20080117
  Transmission Date: 20080703
  Serious: No
  Sender: FDA-Public Use
  Company Number: US-BAXTER-2008BH000481

PATIENT

DRUGS (1)
  1. HEPARIN SODIUM [Suspect]
     Indication: PROPHYLAXIS
     Dosage: DOSE UNIT:UNKNOWN
     Route: 065
     Dates: start: 20080117, end: 20080117

REACTIONS (5)
  - ABDOMINAL PAIN [None]
  - BLOOD PRESSURE DECREASED [None]
  - HOT FLUSH [None]
  - NAUSEA [None]
  - VOMITING [None]
